FAERS Safety Report 13883483 (Version 1)
Quarter: 2017Q3

REPORT INFORMATION
  Report Type: Other
  Country: GB (occurrence: CA)
  Receive Date: 20170818
  Receipt Date: 20170818
  Transmission Date: 20171127
  Serious: Yes (Life-Threatening, Other)
  Sender: FDA-Public Use
  Company Number: CA-INTERNATIONAL MEDICATION SYSTEMS, LIMITED-2024805

PATIENT
  Age: 36 Year
  Sex: Female

DRUGS (1)
  1. LIDOCAINE. [Suspect]
     Active Substance: LIDOCAINE
     Indication: CEREBROSPINAL FLUID LEAKAGE

REACTIONS (2)
  - Anaesthetic complication neurological [Unknown]
  - Respiratory failure [Recovered/Resolved]
